FAERS Safety Report 8904042 (Version 1)
Quarter: 2012Q4

REPORT INFORMATION
  Report Type: 
  Country: MX (occurrence: MX)
  Receive Date: 20121113
  Receipt Date: 20121113
  Transmission Date: 20130627
  Serious: Yes (Hospitalization)
  Sender: FDA-Public Use
  Company Number: PHHY2012MX104444

PATIENT
  Age: 76 Year
  Sex: Male

DRUGS (7)
  1. GALVUS MET [Suspect]
     Indication: DIABETES MELLITUS
     Dosage: 1 DF (1000/50 mg),Daily
     Dates: start: 20121026
  2. CO-DIOVAN [Suspect]
     Indication: HYPERTENSION
     Dosage: 1 DF (160/12.5 mg), daily
  3. CO-DIOVAN [Suspect]
     Dosage: 1 DF (160/12.5 mg), Daily
     Dates: start: 20121029
  4. LANOXIN [Concomitant]
     Indication: HYPERTENSION
     Dosage: 1 DF, QD
  5. PLAVIX [Concomitant]
     Indication: CARDIAC DISORDER
     Dosage: 1 DF (75 mg), Daily
  6. ADALAT [Concomitant]
     Dosage: 1 DF (30 mg), QD
  7. ATIVAN [Concomitant]
     Indication: SLEEP DISORDER
     Dosage: 1 DF (2 mg), QD

REACTIONS (5)
  - Intestinal dilatation [Recovered/Resolved]
  - Abdominal discomfort [Recovered/Resolved]
  - Dyspnoea [Recovered/Resolved]
  - Dizziness [Recovered/Resolved]
  - Cardiomegaly [Unknown]
